FAERS Safety Report 10215214 (Version 1)
Quarter: 2014Q2

REPORT INFORMATION
  Report Type: Report from Study
  Country: VE (occurrence: VE)
  Receive Date: 20140603
  Receipt Date: 20140603
  Transmission Date: 20141212
  Serious: Yes (Other)
  Sender: FDA-Public Use
  Company Number: PHHY2014VE066902

PATIENT
  Age: 61 Year
  Sex: Female

DRUGS (5)
  1. ONBREZ [Suspect]
     Indication: CHRONIC OBSTRUCTIVE PULMONARY DISEASE
     Dosage: 150 UKN, UNK
     Route: 048
     Dates: start: 20140117
  2. XOLAIR [Suspect]
     Dosage: UNK UKN, UNK
     Route: 058
  3. XOLAIR [Suspect]
     Dosage: 300 MG (MONTHLY)
     Route: 058
     Dates: start: 201312, end: 201312
  4. MIFLONIDE [Suspect]
     Indication: CHRONIC OBSTRUCTIVE PULMONARY DISEASE
     Dosage: 400 MG DAILY
     Route: 048
     Dates: start: 20140117
  5. SPIRIVA [Concomitant]
     Dosage: 18 MG DAILY
     Route: 048
     Dates: start: 20140117

REACTIONS (7)
  - Nephrolithiasis [Unknown]
  - Urinary tract infection [Unknown]
  - Infection parasitic [Unknown]
  - Vomiting [Recovering/Resolving]
  - Dyspnoea [Recovering/Resolving]
  - Cough [Recovering/Resolving]
  - Nausea [Recovering/Resolving]
